FAERS Safety Report 8015493-0 (Version None)
Quarter: 2011Q4

REPORT INFORMATION
  Report Type: 
  Country: None (occurrence: None)
  Receive Date: 20111223
  Receipt Date: 20111213
  Transmission Date: 20120403
  Serious: Yes (Hospitalization)
  Sender: FDA-Public Use
  Company Number: FK201103020

PATIENT
  Age: 73 Year
  Sex: Male

DRUGS (2)
  1. OXALIPLATIN [Suspect]
     Indication: RECTAL CANCER
     Dosage: 60 MG/M2, INTRAVENOUS (NOT OTHERWISE SPECIFIED)
  2. CAPECITABINE [Suspect]
     Indication: RECTAL CANCER
     Dosage: 825 MG/M2, 2 IN 1 D

REACTIONS (10)
  - HYPOTENSION [None]
  - PNEUMATOSIS [None]
  - ABDOMINAL PAIN [None]
  - PROCTITIS [None]
  - RECTAL TENESMUS [None]
  - LEUKOPENIA [None]
  - TACHYCARDIA [None]
  - COLITIS [None]
  - PYREXIA [None]
  - DIARRHOEA [None]
